FAERS Safety Report 19395356 (Version 1)
Quarter: 2021Q2

REPORT INFORMATION
  Report Type: Spontaneous
  Country: US (occurrence: US)
  Receive Date: 20210609
  Receipt Date: 20210609
  Transmission Date: 20210717
  Serious: No
  Sender: FDA-Public Use
  Company Number: US-GW PHARMA-202106USGW02761

PATIENT

DRUGS (1)
  1. EPIDIOLEX [Suspect]
     Active Substance: CANNABIDIOL
     Indication: IDIOPATHIC GENERALISED EPILEPSY
     Dosage: 300 MILLIGRAM
     Route: 048
     Dates: start: 20200211

REACTIONS (3)
  - Sleep disorder [Unknown]
  - Dark circles under eyes [Unknown]
  - Product use in unapproved indication [Unknown]
